FAERS Safety Report 16166077 (Version 1)
Quarter: 2019Q2

REPORT INFORMATION
  Report Type: Spontaneous
  Country: US (occurrence: US)
  Receive Date: 20190406
  Receipt Date: 20190406
  Transmission Date: 20190711
  Serious: Yes (Other)
  Sender: FDA-Public Use
  Company Number: US-TEVA-2019-US-1032730

PATIENT
  Age: 77 Year
  Sex: Female

DRUGS (1)
  1. CLONAZEPAM. [Suspect]
     Active Substance: CLONAZEPAM
     Indication: ANXIETY
     Dosage: FOR 15-20 YEARS
     Route: 065

REACTIONS (2)
  - Seizure [Unknown]
  - Therapy cessation [Unknown]

NARRATIVE: CASE EVENT DATE: 201812
